FAERS Safety Report 8268109-2 (Version None)
Quarter: 2012Q2

REPORT INFORMATION
  Report Type: 
  Country: None (occurrence: None)
  Receive Date: 20120409
  Receipt Date: 20120329
  Transmission Date: 20120825
  Serious: Yes (Hospitalization, Other)
  Sender: FDA-Public Use
  Company Number: US-ELI_LILLY_AND_COMPANY-US201109003167

PATIENT
  Sex: Female
  Weight: 76.2 kg

DRUGS (11)
  1. VITAMIN D [Concomitant]
  2. FORTEO [Suspect]
     Indication: OSTEOPOROSIS
     Dosage: 20 UG, QD
  3. FORTEO [Suspect]
     Dosage: 20 UG, QD
  4. TOPOL [Concomitant]
  5. SYMBICORT [Concomitant]
     Dosage: 160/4.5
  6. ASPIRIN [Concomitant]
     Dosage: 81 MG, UNK
  7. IMDUR [Concomitant]
     Dosage: 30 MG, UNK
  8. FORTEO [Suspect]
     Dosage: 20 UG, QD
  9. NAPROSYN [Concomitant]
  10. SIMVASTATIN [Concomitant]
     Dosage: 40 MG, UNK
  11. TOPROL-XL [Concomitant]

REACTIONS (11)
  - ADVERSE EVENT [None]
  - ARTHRALGIA [None]
  - SEROMA [None]
  - HAEMATOMA [None]
  - HERNIA REPAIR [None]
  - PARAESTHESIA [None]
  - MUSCLE SPASMS [None]
  - LACRIMATION INCREASED [None]
  - PANCREATITIS [None]
  - GALLBLADDER OPERATION [None]
  - CONTUSION [None]
